FAERS Safety Report 16463976 (Version 1)
Quarter: 2019Q3

REPORT INFORMATION
  Report Type: Spontaneous
  Country: US (occurrence: US)
  Receive Date: 20190620
  Receipt Date: 20190620
  Transmission Date: 20191004
  Serious: Yes (Death)
  Sender: FDA-Public Use
  Company Number: None

PATIENT
  Age: 13 Year
  Sex: Female
  Weight: 42.4 kg

DRUGS (11)
  1. PREDNISONE. [Concomitant]
     Active Substance: PREDNISONE
  2. MULTIVITAMIN [Concomitant]
     Active Substance: VITAMINS
  3. ANAKINRA [Suspect]
     Active Substance: ANAKINRA
     Indication: SYSTEMIC LUPUS ERYTHEMATOSUS
     Route: 058
     Dates: start: 20181101, end: 20190617
  4. LEVALBUTEROL. [Concomitant]
     Active Substance: LEVALBUTEROL
  5. LANSOPRAZOLE. [Concomitant]
     Active Substance: LANSOPRAZOLE
  6. ENOXAPARIN [Concomitant]
     Active Substance: ENOXAPARIN
  7. CALCITRIOL. [Concomitant]
     Active Substance: CALCITRIOL
  8. FLUTICASONE HFA INHALER [Concomitant]
  9. VORICONAZOLE. [Concomitant]
     Active Substance: VORICONAZOLE
  10. URSODIOL. [Concomitant]
     Active Substance: URSODIOL
  11. FERROUS SULFATE. [Concomitant]
     Active Substance: FERROUS SULFATE

REACTIONS (2)
  - Escherichia sepsis [None]
  - Peritoneal dialysis [None]
